FAERS Safety Report 7439217-0 (Version None)
Quarter: 2011Q2

REPORT INFORMATION
  Report Type: 
  Country: None (occurrence: None)
  Receive Date: 20110427
  Receipt Date: 20110415
  Transmission Date: 20111010
  Serious: Yes (Life-Threatening, Hospitalization, Other)
  Sender: FDA-Public Use
  Company Number: US-BAYER-200923634NA

PATIENT
  Age: 18 Year
  Sex: Female

DRUGS (1)
  1. MIRENA [Suspect]
     Indication: CONTRACEPTION
     Dosage: 20 ?G (DAILY DOSE), , INTRA-UTERINE
     Route: 015
     Dates: start: 20070301, end: 20070701

REACTIONS (19)
  - VAGINAL HAEMORRHAGE [None]
  - FATIGUE [None]
  - INFREQUENT BOWEL MOVEMENTS [None]
  - ABASIA [None]
  - VOMITING [None]
  - SYNCOPE [None]
  - MEDICAL DEVICE COMPLICATION [None]
  - GASTROINTESTINAL DISORDER [None]
  - POLYMENORRHOEA [None]
  - VAGINAL DISCHARGE [None]
  - APHAGIA [None]
  - WEIGHT DECREASED [None]
  - OVARIAN CYST [None]
  - MOBILITY DECREASED [None]
  - DECREASED APPETITE [None]
  - ABDOMINAL ABSCESS [None]
  - PAIN [None]
  - COMPLICATION OF DEVICE INSERTION [None]
  - ABDOMINAL PAIN [None]
